FAERS Safety Report 4541932-3 (Version None)
Quarter: 2004Q4

REPORT INFORMATION
  Report Type: 
  Country: None (occurrence: None)
  Receive Date: 20041229
  Receipt Date: 20041229
  Transmission Date: 20050328
  Serious: No
  Sender: FDA-Public Use
  Company Number: None

PATIENT
  Age: 84 Year
  Sex: Female
  Weight: 31.7518 kg

DRUGS (2)
  1. ALBUTEROL SULATE [Suspect]
     Dosage: 2.5 MG RESPIRATOR
     Route: 055
  2. IPRATROPIUM BROMIDE [Suspect]
     Indication: ASTHMA
     Dosage: 0.5 MG RESPIRATOR
     Route: 055
     Dates: start: 20041227, end: 20041227

REACTIONS (1)
  - MEDICATION ERROR [None]
